FAERS Safety Report 4592232-7 (Version None)
Quarter: 2005Q1

REPORT INFORMATION
  Report Type: 
  Country: None (occurrence: None)
  Receive Date: 20050228
  Receipt Date: 20041014
  Transmission Date: 20050727
  Serious: Yes (Hospitalization, Other)
  Sender: FDA-Public Use
  Company Number: US-BRISTOL-MYERS SQUIBB COMPANY-12733150

PATIENT
  Age: 60 Year
  Sex: Female
  Weight: 68 kg

DRUGS (12)
  1. ABILIFY [Suspect]
     Indication: SCHIZOAFFECTIVE DISORDER
     Dosage: INITIATED 5 MG/DAY APR-04, INC TO 10 MG/DAY APR-04, INC TO 15 MG/DAY ON 05-OCT-04.
     Route: 048
     Dates: start: 20040422, end: 20041014
  2. TRAZODONE HCL [Concomitant]
     Dosage: 300-600 MG ORAL QHS
     Route: 048
  3. MIRTAZAPINE [Concomitant]
     Dosage: QHS
     Route: 048
  4. LORAZEPAM [Concomitant]
     Route: 048
  5. DETROL [Concomitant]
  6. ISOSORBIDE MONONITRATE [Concomitant]
  7. PLAVIX [Concomitant]
  8. ASPIRIN [Concomitant]
  9. QUININE SULFATE [Concomitant]
  10. LEXAPRO [Concomitant]
  11. PRILOSEC [Concomitant]
  12. VIOXX [Concomitant]
     Route: 048

REACTIONS (4)
  - ABDOMINAL PAIN [None]
  - BRONCHITIS ACUTE [None]
  - PANCREATITIS ACUTE [None]
  - SINUS BRADYCARDIA [None]
